FAERS Safety Report 24366490 (Version 1)
Quarter: 2024Q3

REPORT INFORMATION
  Report Type: Spontaneous
  Country: US (occurrence: US)
  Receive Date: 20240926
  Receipt Date: 20240926
  Transmission Date: 20241017
  Serious: Yes (Hospitalization)
  Sender: ANI
  Company Number: US-ANIPHARMA-2024-US-050193

PATIENT
  Age: 54 Year
  Sex: Female
  Weight: 90.72 kg

DRUGS (10)
  1. CORTICOTROPIN [Suspect]
     Active Substance: CORTICOTROPIN
     Indication: Scleritis
     Dosage: 0.25 ML WEEKLY
     Dates: start: 202401
  2. HUMIRA [Concomitant]
     Active Substance: ADALIMUMAB
  3. TRESIBA [Concomitant]
     Active Substance: INSULIN DEGLUDEC
  4. NOVOLIN 70/30 [Concomitant]
     Active Substance: INSULIN HUMAN
  5. PROBIOTICS NOS [Concomitant]
     Active Substance: PROBIOTICS NOS
  6. K2-D3 5000 [Concomitant]
  7. LOSARTAN POTASSIUM [Concomitant]
     Active Substance: LOSARTAN POTASSIUM
  8. XANAX [Concomitant]
     Active Substance: ALPRAZOLAM
  9. IBUPROFEN [Concomitant]
     Active Substance: IBUPROFEN
  10. RITUXAN HYCELA [Concomitant]
     Active Substance: HYALURONIDASE (HUMAN RECOMBINANT)\RITUXIMAB

REACTIONS (5)
  - Pneumonia bacterial [Recovered/Resolved]
  - Blood glucose abnormal [Recovered/Resolved]
  - Cough [Recovered/Resolved]
  - Fatigue [Recovered/Resolved]
  - Renal impairment [Unknown]

NARRATIVE: CASE EVENT DATE: 20240101
